FAERS Safety Report 9715874 (Version 1)
Quarter: 2013Q4

REPORT INFORMATION
  Report Type: Spontaneous
  Country: BR (occurrence: BR)
  Receive Date: 20131127
  Receipt Date: 20131127
  Transmission Date: 20140711
  Serious: Yes (Other)
  Sender: FDA-Public Use
  Company Number: BR-SA-2013SA119908

PATIENT
  Age: 92 Year
  Sex: Female

DRUGS (4)
  1. LANTUS [Suspect]
     Indication: DIABETES MELLITUS
     Dosage: DOSE:8 UNIT(S)
     Route: 058
  2. APIDRA [Suspect]
     Indication: DIABETES MELLITUS
     Route: 058
     Dates: start: 2012
  3. CLIKSTAR [Concomitant]
     Indication: DEVICE THERAPY
  4. CLIKSTAR [Concomitant]
     Indication: DEVICE THERAPY

REACTIONS (1)
  - Abdominal cavity drainage [Recovering/Resolving]
